FAERS Safety Report 10274387 (Version 3)
Quarter: 2016Q2

REPORT INFORMATION
  Report Type: Spontaneous
  Country: CA (occurrence: CA)
  Receive Date: 20140702
  Receipt Date: 20160513
  Transmission Date: 20160815
  Serious: Yes (Hospitalization, Other)
  Sender: FDA-Public Use
  Company Number: CA-ASTELLAS-2014US007642

PATIENT
  Age: 63 Year
  Sex: Female

DRUGS (3)
  1. PROGRAF [Suspect]
     Active Substance: TACROLIMUS\TACROLIMUS ANHYDROUS
     Indication: HEART TRANSPLANT
     Dosage: 1.5 MG, ONCE DAILY (1 MG IN AM AND 0.5 MG IN PM)
     Route: 048
     Dates: start: 19890708
  2. DILAUDID [Concomitant]
     Active Substance: HYDROMORPHONE HYDROCHLORIDE
     Indication: PRODUCT USED FOR UNKNOWN INDICATION
     Dosage: UNK UNK, UNKNOWN FREQ.
     Route: 065
  3. PANTOLOC                           /01263204/ [Concomitant]
     Active Substance: PANTOPRAZOLE SODIUM
     Indication: PRODUCT USED FOR UNKNOWN INDICATION
     Dosage: UNK UNK, UNKNOWN FREQ.
     Route: 065

REACTIONS (17)
  - Pyrexia [Unknown]
  - Weight increased [Recovering/Resolving]
  - Decreased appetite [Unknown]
  - Flank pain [Unknown]
  - Cough [Unknown]
  - Abdominal distension [Unknown]
  - Retching [Unknown]
  - Sneezing [Unknown]
  - Cardiac failure [Unknown]
  - Fluid intake reduced [Unknown]
  - Renal impairment [Unknown]
  - Pneumonia fungal [Unknown]
  - Renal failure [Unknown]
  - Vomiting [Unknown]
  - Complication associated with device [Unknown]
  - Lower respiratory tract infection [Unknown]
  - Asthenia [Unknown]

NARRATIVE: CASE EVENT DATE: 201404
